FAERS Safety Report 9345289 (Version 1)
Quarter: 2013Q2

REPORT INFORMATION
  Report Type: Spontaneous
  Country: GB (occurrence: GB)
  Receive Date: 20130613
  Receipt Date: 20130613
  Transmission Date: 20140414
  Serious: Yes (Other)
  Sender: FDA-Public Use
  Company Number: GB-B.I. PHARMACEUTICALS,INC./RIDGEFIELD-2013-UK-01176UK

PATIENT
  Sex: Female
  Weight: 88.5 kg

DRUGS (10)
  1. PRADAXA [Suspect]
     Indication: ATRIAL FIBRILLATION
     Dosage: 220 MG
     Dates: start: 20130508, end: 20130522
  2. VERAPAMIL [Concomitant]
     Dosage: 160 MG
     Route: 048
     Dates: start: 20120427
  3. GAVISCON [Concomitant]
     Indication: GASTROOESOPHAGEAL REFLUX DISEASE
     Dosage: 10 ML
     Route: 048
     Dates: start: 19961216
  4. PARIET EC [Concomitant]
     Indication: GASTROOESOPHAGEAL REFLUX DISEASE
     Dosage: 10 MG
     Route: 048
     Dates: start: 20060426
  5. NITROMIN CFC [Concomitant]
     Dosage: 1 SPRAY PRN
     Route: 060
     Dates: start: 20071206
  6. DIGOXIN [Concomitant]
     Dosage: 125 MCG
     Route: 048
     Dates: start: 20111013
  7. CETIRIZINE [Concomitant]
     Indication: URTICARIA
     Dosage: OD
     Dates: start: 20130426
  8. FULTIUM VIT D [Concomitant]
     Indication: VITAMIN D DEFICIENCY
     Dosage: 2 DAILY
     Dates: start: 20121103
  9. NATURE-THROID [Concomitant]
     Indication: HYPOTHYROIDISM
     Dosage: 1 1/2 DAILY
     Dates: start: 20121102
  10. PRAVASTATIN [Concomitant]
     Indication: MYOCARDIAL ISCHAEMIA
     Dosage: 10 MG
     Dates: start: 20120328

REACTIONS (4)
  - Nausea [Recovered/Resolved]
  - Urticaria [Not Recovered/Not Resolved]
  - Peripheral coldness [Recovered/Resolved]
  - Hiccups [Recovered/Resolved]
